FAERS Safety Report 9688266 (Version 4)
Quarter: 2014Q2

REPORT INFORMATION
  Report Type: Spontaneous
  Country: IT (occurrence: IT)
  Receive Date: 20131114
  Receipt Date: 20140403
  Transmission Date: 20141212
  Serious: Yes (Hospitalization)
  Sender: FDA-Public Use
  Company Number: IT-009507513-1311ITA003648

PATIENT
  Age: 67 Year
  Sex: Female
  Weight: 55 kg

DRUGS (6)
  1. VICTRELIS [Suspect]
     Indication: HEPATITIS C
     Dosage: 2400 MG, DAILY
     Route: 048
     Dates: start: 20131030, end: 20131104
  2. PEGINTRON [Concomitant]
     Dosage: 80 MCG, UNK
     Route: 058
     Dates: start: 20130930, end: 20131028
  3. REBETOL [Concomitant]
     Dosage: 1000 MG, UNK
     Route: 048
     Dates: start: 20130930, end: 20131104
  4. LOSARTAN POTASSIUM [Concomitant]
     Route: 048
  5. NITROGLYCERIN [Concomitant]
     Route: 062
  6. EUTHYROX [Concomitant]

REACTIONS (1)
  - Pancreatitis acute [Not Recovered/Not Resolved]
